FAERS Safety Report 4531795-4 (Version None)
Quarter: 2004Q4

REPORT INFORMATION
  Report Type: 
  Country: None (occurrence: None)
  Receive Date: 20041206
  Receipt Date: 20040927
  Transmission Date: 20050328
  Serious: No
  Sender: FDA-Public Use
  Company Number: USA040979359

PATIENT
  Age: 50 Year
  Sex: Male

DRUGS (3)
  1. CYMBALTA [Suspect]
     Indication: ANXIETY
     Dosage: 30 MG/2 DAY
     Dates: start: 20040915, end: 20040926
  2. PAXIL [Concomitant]
  3. XANAX (ALPRAZOLAM DUM) [Concomitant]

REACTIONS (2)
  - ANXIETY [None]
  - FEELING JITTERY [None]
